FAERS Safety Report 4900075-7 (Version None)
Quarter: 2006Q1

REPORT INFORMATION
  Report Type: 
  Country: None (occurrence: None)
  Receive Date: 20060203
  Receipt Date: 20060111
  Transmission Date: 20060701
  Serious: Yes (Hospitalization, Other)
  Sender: FDA-Public Use
  Company Number: IT-BRISTOL-MYERS SQUIBB COMPANY-13243332

PATIENT
  Age: 68 Year
  Sex: Female

DRUGS (6)
  1. KARVEZIDE TABS [Suspect]
     Route: 048
     Dates: start: 20050101, end: 20060101
  2. PLAVIX [Suspect]
     Indication: ACUTE CORONARY SYNDROME
     Route: 048
     Dates: start: 20050701, end: 20051201
  3. FLUVASTATIN [Concomitant]
     Route: 048
  4. AMLODIPINE [Concomitant]
     Route: 048
  5. BISOPROLOL [Concomitant]
     Route: 048
  6. ACETYLSALICYLIC ACID SRT [Concomitant]

REACTIONS (1)
  - PANCYTOPENIA [None]
